FAERS Safety Report 5409350-3 (Version None)
Quarter: 2007Q3

REPORT INFORMATION
  Report Type: 
  Country: None (occurrence: None)
  Receive Date: 20070809
  Receipt Date: 20070802
  Transmission Date: 20080115
  Serious: Yes (Other)
  Sender: FDA-Public Use
  Company Number: US-BAYER-200710689BCC

PATIENT
  Age: 43 Year
  Sex: Female
  Weight: 47 kg

DRUGS (1)
  1. RID MOUSSE [Suspect]
     Indication: LICE INFESTATION
     Route: 061
     Dates: start: 20070114

REACTIONS (14)
  - ABORTION SPONTANEOUS [None]
  - ANAEMIA [None]
  - DEPRESSION [None]
  - DIZZINESS [None]
  - DRUG EXPOSURE DURING PREGNANCY [None]
  - FATIGUE [None]
  - FEELING ABNORMAL [None]
  - HAEMORRHAGE [None]
  - HEART RATE INCREASED [None]
  - LOSS OF CONSCIOUSNESS [None]
  - MENORRHAGIA [None]
  - PREGNANCY [None]
  - THROMBOSIS [None]
  - VAGINITIS BACTERIAL [None]
